FAERS Safety Report 24052470 (Version 1)
Quarter: 2024Q3

REPORT INFORMATION
  Report Type: Spontaneous
  Country: US (occurrence: US)
  Receive Date: 20240705
  Receipt Date: 20240705
  Transmission Date: 20241017
  Serious: No
  Sender: SANOFI AVENTIS
  Company Number: US-SA-SAC20240701001003

PATIENT
  Age: 58 Year
  Sex: Female

DRUGS (11)
  1. KEVZARA [Suspect]
     Active Substance: SARILUMAB
     Indication: Polymyositis
     Dosage: 200 MG, QOW
     Route: 058
     Dates: start: 202404
  2. GLUCOSAMINE SULFATE [Concomitant]
     Active Substance: GLUCOSAMINE SULFATE
  3. IRON [Concomitant]
     Active Substance: IRON
  4. PRILOSEC OTC [Concomitant]
     Active Substance: OMEPRAZOLE MAGNESIUM
  5. VITAMIN E [Concomitant]
     Active Substance: .ALPHA.-TOCOPHEROL
  6. MINERALS\VITAMINS [Concomitant]
     Active Substance: MINERALS\VITAMINS
  7. CRANBERRY [Concomitant]
     Active Substance: CRANBERRY
  8. PROBENECID [Concomitant]
     Active Substance: PROBENECID
  9. DULOXETINE [Concomitant]
     Active Substance: DULOXETINE
  10. CARVEDILOL [Concomitant]
     Active Substance: CARVEDILOL
  11. DILTIAZEM [Concomitant]
     Active Substance: DILTIAZEM

REACTIONS (2)
  - Injection site dryness [Recovering/Resolving]
  - Product use in unapproved indication [Unknown]

NARRATIVE: CASE EVENT DATE: 20240101
